FAERS Safety Report 26118031 (Version 1)
Quarter: 2025Q4

REPORT INFORMATION
  Report Type: Spontaneous
  Country: CA (occurrence: CA)
  Receive Date: 20251203
  Receipt Date: 20251203
  Transmission Date: 20260118
  Serious: Yes (Hospitalization, Other)
  Sender: SANDOZ
  Company Number: CA-002147023-NVSC2025CA182429

PATIENT
  Age: 78 Year
  Sex: Female

DRUGS (54)
  1. AMLODIPINE [Suspect]
     Active Substance: AMLODIPINE BESYLATE
     Indication: Hypertension
     Dosage: 10 MG, QD
     Route: 065
  2. APIXABAN [Suspect]
     Active Substance: APIXABAN
     Indication: Anticoagulant therapy
     Dosage: 2 DF, QD
     Route: 048
  3. ACEBUTOLOL [Suspect]
     Active Substance: ACEBUTOLOL
     Indication: Hypertension
     Dosage: UNK
     Route: 065
  4. ASPIRIN [Suspect]
     Active Substance: ASPIRIN
     Indication: Cerebrovascular accident
     Dosage: 81 MG, QD
     Route: 065
  5. ASPIRIN [Suspect]
     Active Substance: ASPIRIN
     Indication: Anticoagulant therapy
     Dosage: UNK
     Route: 065
  6. ALISKIREN [Suspect]
     Active Substance: ALISKIREN
     Indication: Hypertension
     Dosage: 300 MG, QD
     Route: 065
  7. ASPIRIN [Suspect]
     Active Substance: ASPIRIN
     Indication: Cerebrovascular accident
     Dosage: 81 MG
     Route: 065
  8. BETAMETHASONE [Suspect]
     Active Substance: BETAMETHASONE
     Indication: Psoriasis
     Dosage: UNK
     Route: 065
  9. BETAMETHASONE DIPROPIONATE [Suspect]
     Active Substance: BETAMETHASONE DIPROPIONATE
     Indication: Psoriasis
     Route: 065
  10. CALCIUM CARBONATE [Suspect]
     Active Substance: CALCIUM CARBONATE
     Indication: Osteoporosis
     Dosage: 1 DF, QD
     Route: 065
  11. CALCIUM GLUBIONATE [Suspect]
     Active Substance: CALCIUM GLUBIONATE
     Indication: Osteoporosis
     Dosage: 1 DF
     Route: 065
  12. CALCIUM GLUCONATE [Suspect]
     Active Substance: CALCIUM GLUCONATE
     Indication: Osteoporosis
     Dosage: 1 DF
     Route: 065
  13. CLOPIDOGREL BISULFATE [Suspect]
     Active Substance: CLOPIDOGREL BISULFATE
     Indication: Anticoagulant therapy
     Dosage: UNK
     Route: 065
  14. GLICLAZIDE [Suspect]
     Active Substance: GLICLAZIDE
     Indication: Diabetes mellitus
     Dosage: 60 MG, QD
     Route: 065
  15. HYDRALAZINE [Suspect]
     Active Substance: HYDRALAZINE HYDROCHLORIDE
     Indication: Hypertension
     Dosage: UNK
     Route: 065
  16. JANUVIA [Suspect]
     Active Substance: SITAGLIPTIN PHOSPHATE
     Indication: Diabetes mellitus
     Dosage: 100 MG, QD
     Route: 048
  17. JANUVIA [Suspect]
     Active Substance: SITAGLIPTIN PHOSPHATE
     Dosage: UNK
     Route: 065
  18. LABETALOL [Suspect]
     Active Substance: LABETALOL
     Indication: Hypertension
     Dosage: 1000 MG, QD
     Route: 065
  19. LABETALOL [Suspect]
     Active Substance: LABETALOL
     Dosage: 500 MG, BID
     Route: 065
  20. LABETALOL [Suspect]
     Active Substance: LABETALOL
     Dosage: 400 MG, QD
     Route: 065
  21. LABETALOL [Suspect]
     Active Substance: LABETALOL
     Dosage: 200 MG, BID
     Route: 065
  22. LEVOTHYROXINE SODIUM [Suspect]
     Active Substance: LEVOTHYROXINE SODIUM
     Indication: Hypothyroidism
     Dosage: 0.888 MG, QD
     Route: 065
  23. METFORMIN [Suspect]
     Active Substance: METFORMIN HYDROCHLORIDE
     Indication: Diabetes mellitus
     Dosage: 1000 MG, QD
     Route: 065
  24. METHOCARBAMOL [Suspect]
     Active Substance: METHOCARBAMOL
     Indication: Pain
     Dosage: 400 MG, BID
     Route: 065
  25. METHOCARBAMOL [Suspect]
     Active Substance: METHOCARBAMOL
     Indication: Back pain
     Dosage: UNK
     Route: 065
  26. RISEDRONIC ACID [Suspect]
     Active Substance: RISEDRONIC ACID
     Indication: Osteoporosis
     Dosage: 35 MG, QD
     Route: 065
  27. ALBUTEROL SULFATE [Suspect]
     Active Substance: ALBUTEROL SULFATE
     Indication: Product used for unknown indication
     Dosage: 365 UNK
     Route: 065
  28. SIMVASTATIN [Suspect]
     Active Substance: SIMVASTATIN
     Indication: Cerebrovascular accident
     Dosage: 10 MG, QD
     Route: 065
  29. THEO-DUR [Suspect]
     Active Substance: THEOPHYLLINE ANHYDROUS
     Indication: Hypertension
     Route: 065
  30. TRAMADOL [Suspect]
     Active Substance: TRAMADOL
     Indication: Pain
     Route: 065
  31. TRAMADOL HYDROCHLORIDE [Suspect]
     Active Substance: TRAMADOL HYDROCHLORIDE
     Indication: Pain
     Dosage: UNK
     Route: 065
  32. VALSARTAN [Suspect]
     Active Substance: VALSARTAN
     Indication: Hypertension
     Dosage: 320 MG, QD
     Route: 065
  33. VITAMIN B12 [Suspect]
     Active Substance: CYANOCOBALAMIN
     Indication: Product used for unknown indication
     Dosage: UNK
     Route: 065
  34. ZOCOR [Suspect]
     Active Substance: SIMVASTATIN
     Indication: Cerebrovascular accident
     Dosage: 10 MG, QD
     Route: 065
  35. ACETAMINOPHEN [Concomitant]
     Active Substance: ACETAMINOPHEN
     Indication: Pain
     Dosage: 325 MG, BID
     Route: 065
  36. ALLOPURINOL [Concomitant]
     Active Substance: ALLOPURINOL
     Indication: Metabolic disorder
     Dosage: 10 MG
     Route: 065
  37. ALLOPURINOL [Concomitant]
     Active Substance: ALLOPURINOL
     Dosage: 100 MG, QD
     Route: 065
  38. ALLOPURINOL [Concomitant]
     Active Substance: ALLOPURINOL
     Indication: Gout
     Dosage: 200 MG, QD
     Route: 065
  39. ALLOPURINOL [Concomitant]
     Active Substance: ALLOPURINOL
     Indication: Prophylaxis
     Dosage: 250 UNK
     Route: 065
  40. CALCIPOTRIENE [Concomitant]
     Active Substance: CALCIPOTRIENE
     Indication: Psoriasis
     Dosage: UNK
     Route: 065
  41. CYANOCOBALAMIN [Concomitant]
     Active Substance: CYANOCOBALAMIN
     Indication: Product used for unknown indication
     Route: 065
  42. ERGOCALCIFEROL [Concomitant]
     Active Substance: ERGOCALCIFEROL
     Indication: Product used for unknown indication
     Dosage: UNK
     Route: 065
  43. FLUTICASONE PROPIONATE [Concomitant]
     Active Substance: FLUTICASONE PROPIONATE
     Indication: Wheezing
     Dosage: 2 DOSAGE FORM, BID
     Route: 065
  44. FLUTICASONE PROPIONATE [Concomitant]
     Active Substance: FLUTICASONE PROPIONATE
     Indication: Cough
     Dosage: UNK
     Route: 065
  45. FUROSEMIDE [Concomitant]
     Active Substance: FUROSEMIDE
     Indication: Oedema peripheral
     Dosage: 400 MG, QD
     Route: 065
  46. IBUPROFEN [Concomitant]
     Active Substance: IBUPROFEN
     Indication: Product used for unknown indication
     Dosage: UNK
     Route: 065
  47. PANTOPRAZOLE [Concomitant]
     Active Substance: PANTOPRAZOLE
     Indication: Product used for unknown indication
     Dosage: 400 MG, QD
     Route: 065
  48. HERBALS [Concomitant]
     Active Substance: HERBALS
     Indication: Product used for unknown indication
     Dosage: UNK
     Route: 065
  49. PRAMIPEXOLE DIHYDROCHLORIDE [Concomitant]
     Active Substance: PRAMIPEXOLE DIHYDROCHLORIDE
     Indication: Restless legs syndrome
     Dosage: 0.25 MG, QD
     Route: 065
  50. RANITIDINE [Concomitant]
     Active Substance: RANITIDINE
     Indication: Dyspepsia
     Dosage: 150 MG, QD
     Route: 065
  51. RANITIDINE [Concomitant]
     Active Substance: RANITIDINE
     Dosage: UNK
     Route: 065
  52. RISEDRONATE SODIUM [Concomitant]
     Active Substance: RISEDRONATE SODIUM
     Dosage: 1 DF, QD
     Route: 065
  53. RISEDRONATE SODIUM [Concomitant]
     Active Substance: RISEDRONATE SODIUM
     Indication: Osteoporosis
     Dosage: 35 MG, QW
     Route: 065
  54. SITAGLIPTIN [Concomitant]
     Active Substance: SITAGLIPTIN
     Indication: Diabetes mellitus
     Dosage: 100 MG, QD
     Route: 065

REACTIONS (16)
  - Abdominal discomfort [Unknown]
  - Blood pressure inadequately controlled [Unknown]
  - Cognitive disorder [Unknown]
  - Contusion [Unknown]
  - Depressed mood [Unknown]
  - Diabetes mellitus inadequate control [Unknown]
  - Exercise tolerance decreased [Unknown]
  - Mobility decreased [Unknown]
  - Oedema peripheral [Unknown]
  - Peripheral swelling [Unknown]
  - Hypertension [Unknown]
  - Amnesia [Unknown]
  - Drug ineffective [Unknown]
  - Medication error [Unknown]
  - Off label use [Unknown]
  - Product use issue [Unknown]
